FAERS Safety Report 15022668 (Version 2)
Quarter: 2018Q3

REPORT INFORMATION
  Report Type: Spontaneous
  Country: JP (occurrence: JP)
  Receive Date: 20180618
  Receipt Date: 20180905
  Transmission Date: 20181010
  Serious: Yes (Hospitalization, Other)
  Sender: FDA-Public Use
  Company Number: JP-PFIZER INC-2018211940

PATIENT
  Age: 79 Year
  Sex: Female
  Weight: 49 kg

DRUGS (6)
  1. ADETPHOS [Concomitant]
     Active Substance: ADENOSINE TRIPHOSPHATE
     Indication: TINNITUS
     Dosage: 1 G, 3X/DAY
     Route: 048
     Dates: end: 20180514
  2. EDIROL [Concomitant]
     Active Substance: ELDECALCITOL
     Indication: OSTEOPOROSIS
     Dosage: 0.75 UG, 1X/DAY
     Route: 048
     Dates: end: 20180514
  3. STOMIN A [Concomitant]
     Active Substance: NIACINAMIDE\PAPAVERINE HYDROCHLORIDE
     Indication: TINNITUS
     Dosage: 6 TABLETS, 3X/DAY
     Route: 048
     Dates: end: 20180514
  4. LIPITOR [Suspect]
     Active Substance: ATORVASTATIN CALCIUM
     Indication: DYSLIPIDAEMIA
     Dosage: 10 MG, 1X/DAY
     Route: 048
     Dates: end: 20180514
  5. SUTENT [Suspect]
     Active Substance: SUNITINIB MALATE
     Indication: METASTASES TO LUNG
     Dosage: 50 MG, 1X/DAY
     Route: 048
     Dates: start: 20180501, end: 20180513
  6. SUTENT [Suspect]
     Active Substance: SUNITINIB MALATE
     Indication: RENAL CANCER

REACTIONS (2)
  - Rhabdomyolysis [Recovered/Resolved]
  - Cholestasis [Unknown]

NARRATIVE: CASE EVENT DATE: 20180512
